FAERS Safety Report 23711006 (Version 1)
Quarter: 2024Q2

REPORT INFORMATION
  Report Type: Spontaneous
  Country: US (occurrence: US)
  Receive Date: 20240405
  Receipt Date: 20240405
  Transmission Date: 20240716
  Serious: Yes (Life-Threatening, Hospitalization)
  Sender: FDA-Public Use
  Company Number: US-Accord-388924

PATIENT
  Age: 67 Year
  Sex: Female
  Weight: 57.6 kg

DRUGS (12)
  1. CARBOPLATIN [Suspect]
     Active Substance: CARBOPLATIN
     Indication: Small cell lung cancer extensive stage
     Dosage: Q3W
     Route: 042
     Dates: start: 20230718, end: 20231004
  2. ETOPOSIDE [Suspect]
     Active Substance: ETOPOSIDE
     Indication: Small cell lung cancer extensive stage
     Dosage: Q3W
     Route: 042
     Dates: start: 20230718
  3. MACROBID [Concomitant]
     Active Substance: NITROFURANTOIN\NITROFURANTOIN MONOHYDRATE
     Indication: Prophylaxis
     Dosage: 1 CAPSULE
     Route: 048
     Dates: start: 20231004
  4. LOMOTIL [Concomitant]
     Active Substance: ATROPINE SULFATE\DIPHENOXYLATE HYDROCHLORIDE
     Indication: Diarrhoea
     Dosage: 2 TABLETS, ONCE EVERY 8 HOURS  AS NEEDED?(PRN), PO
     Dates: start: 20230925
  5. MIRTAZAPINE [Concomitant]
     Active Substance: MIRTAZAPINE
     Indication: Depression
     Dosage: 1 TABLET, QD, PO
     Dates: start: 20230925
  6. MELATONIN [Concomitant]
     Active Substance: MELATONIN
     Indication: Insomnia
     Dosage: EVERY NIGHT (QN), PO
     Dates: start: 202203
  7. NEULASTA [Concomitant]
     Active Substance: PEGFILGRASTIM
     Indication: White blood cell count decreased
     Dosage: 0.6ML, ONCE EVERY 21 DAYS, SUBCUTANEOUS INJECTION
     Dates: start: 20230720
  8. ALBUTEROL SULFATE [Concomitant]
     Active Substance: ALBUTEROL SULFATE
     Indication: Dyspnoea
     Dosage: 2.5MG/3ML, PO ONCE EVERY 4 HOURS?(Q4H)
     Dates: start: 20230720
  9. ALBUTEROL SULFATE [Concomitant]
     Active Substance: ALBUTEROL SULFATE
     Indication: Dyspnoea
     Dosage: 90MG, PO, Q4H
     Dates: start: 20230720
  10. ASPIRIN [Concomitant]
     Active Substance: ASPIRIN
     Indication: Blood thrombin
     Dosage: 81MG, PO, QD
     Dates: start: 202209, end: 20230815
  11. MARINOL [Concomitant]
     Active Substance: DRONABINOL
     Indication: Nausea
     Dosage: 2.5MG, PO, TWICE DAILY
     Dates: start: 20230907
  12. ASPIRIN [Concomitant]
     Active Substance: ASPIRIN
     Indication: Thrombosis
     Dosage: 81MG, PO, PRN
     Dates: start: 20220816

REACTIONS (2)
  - Thrombocytopenia [Recovering/Resolving]
  - Anaemia [Recovering/Resolving]

NARRATIVE: CASE EVENT DATE: 20231003
